FAERS Safety Report 19231464 (Version 1)
Quarter: 2021Q2

REPORT INFORMATION
  Report Type: Spontaneous
  Country: US (occurrence: US)
  Receive Date: 20210507
  Receipt Date: 20210507
  Transmission Date: 20210717
  Serious: Yes (Other)
  Sender: FDA-Public Use
  Company Number: US-GLAXOSMITHKLINE-US2021GSK098209

PATIENT
  Sex: Male

DRUGS (7)
  1. ZANTAC [Suspect]
     Active Substance: RANITIDINE HYDROCHLORIDE
     Dosage: 3 TABLETS PER DAY, QD
     Route: 065
     Dates: start: 200501, end: 201901
  2. RANITIDINE. [Suspect]
     Active Substance: RANITIDINE
     Dosage: 3 TABLETS PER DAY, QD
     Route: 065
     Dates: start: 200501, end: 201901
  3. RANITIDINE CAPSULE [Suspect]
     Active Substance: RANITIDINE
     Dosage: 3 TABLETS PER DAY, QD
     Route: 065
     Dates: start: 200501, end: 201901
  4. RANITIDINE. [Suspect]
     Active Substance: RANITIDINE
     Dosage: 3 TABLETS PER DAY, QD
     Route: 065
     Dates: start: 200501, end: 201901
  5. ZANTAC [Suspect]
     Active Substance: RANITIDINE HYDROCHLORIDE
     Dosage: 3 TABLETS PER DAY,  QD
     Route: 065
     Dates: start: 200501, end: 201901
  6. ZANTAC [Suspect]
     Active Substance: RANITIDINE HYDROCHLORIDE
     Dosage: 3 TABLETS PER DAY, QD
     Route: 065
     Dates: start: 200501, end: 201901
  7. RANITIDINE. [Suspect]
     Active Substance: RANITIDINE
     Dosage: 3 TABLETS PER DAY, QD
     Route: 065
     Dates: start: 200501, end: 201901

REACTIONS (2)
  - Hepatic cancer [Unknown]
  - Gastrointestinal carcinoma [Unknown]
